FAERS Safety Report 7954831-1 (Version None)
Quarter: 2011Q4

REPORT INFORMATION
  Report Type: 
  Country: None (occurrence: None)
  Receive Date: 20111202
  Receipt Date: 20111122
  Transmission Date: 20120403
  Serious: Yes (Death, Hospitalization)
  Sender: FDA-Public Use
  Company Number: AU-ACTELION-A-CH2011-56142

PATIENT
  Sex: Male
  Weight: 92.8 kg

DRUGS (13)
  1. AZITHROMYCIN [Concomitant]
  2. FUROSEMIDE [Concomitant]
  3. AMIODARONE HCL [Concomitant]
  4. TRACLEER [Suspect]
     Dosage: 62.5 MG, BID
     Route: 048
     Dates: start: 20110905, end: 20111004
  5. SILDENAFIL [Concomitant]
  6. POLOXAMER [Concomitant]
  7. ASPIRIN [Concomitant]
  8. TRACLEER [Suspect]
     Indication: PULMONARY HYPERTENSION
     Dosage: 125 MG, BID
     Route: 048
     Dates: start: 20111005, end: 20111022
  9. CEFTRIAXONE [Concomitant]
  10. PEXSIG [Concomitant]
  11. MOVIPREP [Concomitant]
  12. SPIRONOLACTONE [Concomitant]
  13. NEXIUM [Concomitant]

REACTIONS (6)
  - RESPIRATORY FAILURE [None]
  - RESPIRATORY ARREST [None]
  - PNEUMONIA [None]
  - FLUID OVERLOAD [None]
  - RENAL FAILURE ACUTE [None]
  - HYPERCAPNIA [None]
